FAERS Safety Report 7958340-5 (Version None)
Quarter: 2011Q4

REPORT INFORMATION
  Report Type: 
  Country: None (occurrence: None)
  Receive Date: 20111205
  Receipt Date: 20111201
  Transmission Date: 20120403
  Serious: Yes (Death)
  Sender: FDA-Public Use
  Company Number: US-ACTELION-A-US2011-49728

PATIENT

DRUGS (2)
  1. TRACLEER [Suspect]
     Indication: PULMONARY ARTERIAL HYPERTENSION
     Dosage: UNK
     Route: 048
     Dates: start: 20110513
  2. REVATIO [Concomitant]

REACTIONS (11)
  - DYSPNOEA [None]
  - DISEASE PROGRESSION [None]
  - OEDEMA [None]
  - GROIN PAIN [None]
  - HEADACHE [None]
  - ABDOMINAL PAIN UPPER [None]
  - DIARRHOEA [None]
  - SYNCOPE [None]
  - PULMONARY ARTERIAL HYPERTENSION [None]
  - DEATH [None]
  - HYPOTENSION [None]
